FAERS Safety Report 11223773 (Version 1)
Quarter: 2015Q2

REPORT INFORMATION
  Report Type: Spontaneous
  Country: US (occurrence: US)
  Receive Date: 20150629
  Receipt Date: 20150629
  Transmission Date: 20150821
  Serious: No
  Sender: FDA-Public Use
  Company Number: US-TEVA-546535USA

PATIENT
  Sex: Female

DRUGS (1)
  1. PROPRANOLOL [Suspect]
     Active Substance: PROPRANOLOL\PROPRANOLOL HYDROCHLORIDE
     Indication: HYPERTENSION
     Dosage: 80 MILLIGRAM DAILY;
     Route: 048

REACTIONS (8)
  - Ocular hyperaemia [Unknown]
  - Hypersensitivity [Unknown]
  - Lacrimation increased [Unknown]
  - Dysgeusia [Unknown]
  - Cough [Unknown]
  - Glossodynia [Unknown]
  - Hypoaesthesia oral [Unknown]
  - Abdominal discomfort [Unknown]
